FAERS Safety Report 21258220 (Version 1)
Quarter: 2022Q3

REPORT INFORMATION
  Report Type: Spontaneous
  Country: IR (occurrence: LB)
  Receive Date: 20220826
  Receipt Date: 20220826
  Transmission Date: 20221026
  Serious: Yes (Hospitalization)
  Sender: FDA-Public Use
  Company Number: 2022A292805

PATIENT
  Age: 60 Year
  Sex: Male

DRUGS (1)
  1. TAGRISSO [Suspect]
     Active Substance: OSIMERTINIB
     Indication: Non-small cell lung cancer
     Route: 048
     Dates: start: 2020

REACTIONS (1)
  - Non-small cell lung cancer [Recovering/Resolving]

NARRATIVE: CASE EVENT DATE: 20220804
